FAERS Safety Report 8909171 (Version 1)
Quarter: 2012Q4

REPORT INFORMATION
  Report Type: Spontaneous
  Country: BR (occurrence: None)
  Receive Date: 20121107
  Receipt Date: 20121107
  Transmission Date: 20130627
  Serious: Yes (Hospitalization)
  Sender: FDA-Public Use
  Company Number: MPS-1000816

PATIENT
  Age: 9 Year
  Sex: Female

DRUGS (4)
  1. ALDURAZYME [Suspect]
     Indication: MUCOPOLYSACCHARIDOSIS
     Dosage: 1.16 MG/KG, Q2W, INTRAVENOUS
     Route: 042
     Dates: start: 200901
  2. ALDURAZYME [Suspect]
     Indication: MUCOPOLYSACCHARIDOSIS
     Dates: start: 20040908, end: 200901
  3. CAPTOPRIL [Concomitant]
  4. FUROSEMIDE (FUROSEMIDE) [Concomitant]

REACTIONS (2)
  - Shunt infection [None]
  - Abdominal abscess [None]
